FAERS Safety Report 18334763 (Version 2)
Quarter: 2020Q4

REPORT INFORMATION
  Report Type: Spontaneous
  Country: RU (occurrence: RU)
  Receive Date: 20201001
  Receipt Date: 20201028
  Transmission Date: 20210113
  Serious: Yes (Hospitalization, Other)
  Sender: FDA-Public Use
  Company Number: RU-EMD SERONO-9187327

PATIENT
  Age: 67 Year
  Sex: Female

DRUGS (6)
  1. GLUCOPHAGE LONG [Suspect]
     Active Substance: METFORMIN HYDROCHLORIDE
     Indication: TYPE 2 DIABETES MELLITUS
     Dosage: 1000 (UNITS UNSPECIFIED)
  2. CARDIOMAGNYL [Concomitant]
     Active Substance: ASPIRIN\MAGNESIUM HYDROXIDE
     Indication: PRODUCT USED FOR UNKNOWN INDICATION
  3. CONCOR [Suspect]
     Active Substance: BISOPROLOL FUMARATE
     Indication: PRODUCT USED FOR UNKNOWN INDICATION
     Dosage: 10 UNSPECIFIED UNITS
  4. INSULIN [Concomitant]
     Active Substance: INSULIN NOS
     Indication: PRODUCT USED FOR UNKNOWN INDICATION
  5. JARDIANCE [Concomitant]
     Active Substance: EMPAGLIFLOZIN
     Indication: PRODUCT USED FOR UNKNOWN INDICATION
  6. CONCOR [Suspect]
     Active Substance: BISOPROLOL FUMARATE
     Dosage: 5 UNSPECIFIED UNITS
     Dates: start: 2004

REACTIONS (8)
  - Atrioventricular block complete [Unknown]
  - Blood pressure decreased [Unknown]
  - Economic problem [Unknown]
  - Drug ineffective [Unknown]
  - Heart rate decreased [Unknown]
  - Renal impairment [Unknown]
  - Glycosylated haemoglobin increased [Unknown]
  - Blood glucose increased [Recovering/Resolving]

NARRATIVE: CASE EVENT DATE: 2020
